FAERS Safety Report 24442847 (Version 1)
Quarter: 2024Q4

REPORT INFORMATION
  Report Type: Spontaneous
  Country: PL (occurrence: PL)
  Receive Date: 20241016
  Receipt Date: 20241016
  Transmission Date: 20250115
  Serious: Yes (Life-Threatening, Other)
  Sender: SANOFI AVENTIS
  Company Number: None

PATIENT
  Age: 40 Year
  Sex: Male
  Weight: 120 kg

DRUGS (2)
  1. ZOLPIDEM TARTRATE [Suspect]
     Active Substance: ZOLPIDEM TARTRATE
     Dosage: UNK; 3-5 TABLETS
     Route: 048
     Dates: start: 20200421, end: 20200421
  2. CLONAZEPAM [Suspect]
     Active Substance: CLONAZEPAM
     Dosage: 15 DF
     Route: 048
     Dates: start: 20200421, end: 20200421

REACTIONS (4)
  - Feeling abnormal [Recovered/Resolved]
  - Psychomotor retardation [Recovered/Resolved]
  - Alcohol poisoning [Recovered/Resolved]
  - Toxicity to various agents [Recovered/Resolved]

NARRATIVE: CASE EVENT DATE: 20200421
